FAERS Safety Report 7058236-X (Version None)
Quarter: 2010Q4

REPORT INFORMATION
  Report Type: 
  Country: None (occurrence: None)
  Receive Date: 20101022
  Receipt Date: 20101013
  Transmission Date: 20110411
  Serious: No
  Sender: FDA-Public Use
  Company Number: US-PFIZER INC-2010130535

PATIENT
  Sex: Female
  Weight: 53.061 kg

DRUGS (5)
  1. ESTRING [Suspect]
     Indication: ATROPHIC VULVOVAGINITIS
     Dosage: 2 MG, UNK
     Route: 067
     Dates: start: 20100920
  2. DOXYCYCLINE HYCLATE [Concomitant]
     Indication: CONJUNCTIVITIS
     Dosage: 20 MG, DAILY
  3. METROGEL [Concomitant]
     Dosage: UNK
     Route: 061
  4. FISH OIL [Concomitant]
     Dosage: UNK
  5. CALCIUM [Concomitant]
     Dosage: UNK

REACTIONS (2)
  - DRY EYE [None]
  - EYE PAIN [None]
